FAERS Safety Report 6056002-5 (Version None)
Quarter: 2009Q1

REPORT INFORMATION
  Report Type: 
  Country: None (occurrence: None)
  Receive Date: 20090126
  Receipt Date: 20090108
  Transmission Date: 20090719
  Serious: Yes (Hospitalization)
  Sender: FDA-Public Use
  Company Number: 100#03#2008-06329

PATIENT
  Age: 74 Year
  Sex: Female

DRUGS (4)
  1. CARBAMAZEPINE [Suspect]
     Indication: SCHIZOPHRENIFORM DISORDER
     Dosage: 200 MG ORAL
     Route: 048
     Dates: start: 20080604, end: 20080608
  2. TAXILAN (PERAZINE) [Concomitant]
  3. HALDOL SOLUTAB [Concomitant]
  4. ZYPREXA [Concomitant]

REACTIONS (1)
  - DERMATITIS ALLERGIC [None]
